FAERS Safety Report 6690193-8 (Version None)
Quarter: 2010Q2

REPORT INFORMATION
  Report Type: 
  Country: None (occurrence: None)
  Receive Date: 20100421
  Receipt Date: 20100411
  Transmission Date: 20101027
  Serious: Yes (Other)
  Sender: FDA-Public Use
  Company Number: US-AMGEN-QUU405680

PATIENT
  Sex: Female

DRUGS (1)
  1. ENBREL [Suspect]
     Indication: PSORIATIC ARTHROPATHY
     Route: 058
     Dates: start: 20100315

REACTIONS (5)
  - DYSPNOEA [None]
  - INJECTION SITE RASH [None]
  - MALAISE [None]
  - OROPHARYNGEAL PAIN [None]
  - THROAT TIGHTNESS [None]
